FAERS Safety Report 19019991 (Version 1)
Quarter: 2021Q1

REPORT INFORMATION
  Report Type: Spontaneous
  Country: US (occurrence: US)
  Receive Date: 20210317
  Receipt Date: 20210317
  Transmission Date: 20210420
  Serious: Yes (Other)
  Sender: FDA-Public Use
  Company Number: None

PATIENT
  Age: 63 Year
  Sex: Male
  Weight: 96 kg

DRUGS (1)
  1. CASIRIVIMAB AND IMDEVIMAB [Suspect]
     Active Substance: CASIRIVIMAB\IMDEVIMAB
     Indication: COVID-19
     Dosage: ?          OTHER FREQUENCY:ONCE;?
     Route: 041
     Dates: start: 20210311, end: 20210311

REACTIONS (6)
  - Oligodipsia [None]
  - Glossodynia [None]
  - Feeding disorder [None]
  - Palatal disorder [None]
  - Tenderness [None]
  - Gingival pain [None]

NARRATIVE: CASE EVENT DATE: 20210311
